FAERS Safety Report 9143727 (Version 2)
Quarter: 2013Q1

REPORT INFORMATION
  Report Type: Report from Study
  Country: US (occurrence: US)
  Receive Date: 20130306
  Receipt Date: 20130328
  Transmission Date: 20140127
  Serious: Yes (Other)
  Sender: FDA-Public Use
  Company Number: US-ROCHE-1198429

PATIENT
  Age: 78 Year
  Sex: Male
  Weight: 110.32 kg

DRUGS (15)
  1. MYCOPHENOLATE MOFETIL [Suspect]
     Indication: HEART TRANSPLANT
     Route: 048
     Dates: start: 20120503
  2. ASPIRIN [Concomitant]
     Route: 065
     Dates: start: 20120503
  3. BYSTOLIC [Concomitant]
     Dosage: 0.5 MG TABLET
     Route: 048
     Dates: start: 20120901
  4. CALCITRIOL [Concomitant]
     Route: 048
     Dates: start: 20120503
  5. CRESTOR [Concomitant]
     Route: 048
     Dates: start: 20120503
  6. CALCITRIOL [Concomitant]
     Route: 048
     Dates: start: 20121007
  7. DOXAZOSIN [Concomitant]
     Dosage: 0.5 MG TABLES FOR 90
     Route: 048
     Dates: start: 20121008
  8. FUROSEMIDE [Concomitant]
     Dosage: 1 TABLET EVERY DAY FOR 90 DAYS
     Route: 048
     Dates: start: 20121007
  9. LANTUS [Concomitant]
     Dosage: 30 UNIT EVERY DAY FOR 30 DAYS
     Route: 058
     Dates: start: 20120920
  10. LISINOPRIL [Concomitant]
     Route: 065
     Dates: start: 20120821
  11. MAGNESIUM OXIDE [Concomitant]
     Route: 048
     Dates: start: 20120903
  12. NOVOLOG [Concomitant]
     Dosage: SLIDING SCALE
     Route: 058
     Dates: start: 20110421
  13. RAPAMUNE [Concomitant]
     Dosage: 1 MG TAB 4 DAY A WEEK AND 0.5 MG TAB: MON, TUE, WED, FRIDAY
     Route: 065
     Dates: start: 20120319
  14. VITAMIN D3 [Concomitant]
     Route: 065
     Dates: start: 20120503
  15. ZETIA [Concomitant]
     Route: 048
     Dates: start: 20120711

REACTIONS (2)
  - Hip fracture [Recovered/Resolved]
  - Fall [Recovered/Resolved]
